FAERS Safety Report 11055974 (Version 1)
Quarter: 2015Q2

REPORT INFORMATION
  Report Type: Spontaneous
  Country: US (occurrence: US)
  Receive Date: 20150422
  Receipt Date: 20150422
  Transmission Date: 20150821
  Serious: No
  Sender: FDA-Public Use
  Company Number: US-AMGEN-USASP2015037761

PATIENT

DRUGS (2)
  1. ORENCIA [Concomitant]
     Active Substance: ABATACEPT
     Dosage: UNK UNK, QMO
  2. ENBREL [Suspect]
     Active Substance: ETANERCEPT
     Indication: PRODUCT USED FOR UNKNOWN INDICATION
     Dosage: UNK
     Route: 065

REACTIONS (3)
  - Pain [Unknown]
  - Musculoskeletal stiffness [Unknown]
  - Drug effect decreased [Unknown]
